FAERS Safety Report 4311071-5 (Version None)
Quarter: 2004Q1

REPORT INFORMATION
  Report Type: 
  Country: None (occurrence: None)
  Receive Date: 20040302
  Receipt Date: 20040218
  Transmission Date: 20041129
  Serious: Yes (Other)
  Sender: FDA-Public Use
  Company Number: 04-060-0946

PATIENT

DRUGS (1)
  1. FAMOTIDINE INJ., UNKNOWN STRENGTH AND MANUFACTURER [Suspect]

REACTIONS (1)
  - MEDICATION ERROR [None]
